FAERS Safety Report 9862351 (Version 1)
Quarter: 2014Q1

REPORT INFORMATION
  Report Type: Spontaneous
  Country: GB (occurrence: GB)
  Receive Date: 20140203
  Receipt Date: 20140203
  Transmission Date: 20141002
  Serious: Yes (Other)
  Sender: FDA-Public Use
  Company Number: GB-NOVOPROD-398547

PATIENT
  Age: 42 Year
  Sex: Female

DRUGS (2)
  1. NOVOMIX 30 [Suspect]
     Indication: TYPE 1 DIABETES MELLITUS
     Dosage: UNKNOWN
     Route: 065
  2. NOVOMIX 30 [Suspect]
     Dosage: 10+10
     Route: 065

REACTIONS (6)
  - Loss of consciousness [Unknown]
  - Dysarthria [Unknown]
  - Feeling abnormal [Unknown]
  - Lethargy [Unknown]
  - Memory impairment [Unknown]
  - Blood glucose fluctuation [Unknown]
